FAERS Safety Report 14546454 (Version 1)
Quarter: 2018Q1

REPORT INFORMATION
  Report Type: Spontaneous
  Country: JP (occurrence: JP)
  Receive Date: 20180219
  Receipt Date: 20180219
  Transmission Date: 20180509
  Serious: Yes (Other)
  Sender: FDA-Public Use
  Company Number: JP-MALLINCKRODT-T201800683

PATIENT
  Age: 70 Year
  Sex: Male

DRUGS (4)
  1. OXIFAST [Suspect]
     Active Substance: OXYCODONE
     Indication: CANCER PAIN
     Dosage: 240 MG
     Route: 042
     Dates: start: 201801
  2. METHADONE [Suspect]
     Active Substance: METHADONE HYDROCHLORIDE
     Indication: CANCER PAIN
     Dosage: 15 MG, (ONE TIME DOSE 5 MG)
     Route: 048
     Dates: start: 20180204, end: 20180205
  3. METHADONE [Suspect]
     Active Substance: METHADONE HYDROCHLORIDE
     Dosage: 30 MG, (ONE TIME DOSE 10 MG)
     Route: 048
     Dates: start: 20180205
  4. CEROCRAL [Suspect]
     Active Substance: IFENPRODIL
     Indication: CANCER PAIN
     Dosage: UNK
     Route: 065
     Dates: start: 20180203, end: 20180203

REACTIONS (3)
  - Restlessness [Not Recovered/Not Resolved]
  - Somnolence [Recovered/Resolved]
  - Delirium [Recovered/Resolved]

NARRATIVE: CASE EVENT DATE: 201802
